FAERS Safety Report 16347572 (Version 10)
Quarter: 2019Q3

REPORT INFORMATION
  Report Type: Report from Study
  Country: US (occurrence: US)
  Receive Date: 20190523
  Receipt Date: 20190809
  Transmission Date: 20191004
  Serious: Yes (Hospitalization, Other)
  Sender: FDA-Public Use
  Company Number: US-GILEAD-2019-0404116

PATIENT
  Age: 32 Year
  Sex: Female
  Weight: 56.5 kg

DRUGS (16)
  1. AMBRISENTAN [Suspect]
     Active Substance: AMBRISENTAN
     Indication: PULMONARY HYPERTENSION
     Dosage: 10 MG, QD
     Route: 048
     Dates: start: 20111102
  2. OXYGEN. [Concomitant]
     Active Substance: OXYGEN
  3. PROSTACYCLIN [Concomitant]
     Active Substance: EPOPROSTENOL
  4. CHLORHEXIDINE [Concomitant]
     Active Substance: CHLORHEXIDINE
  5. XULANE [Concomitant]
     Active Substance: ETHINYL ESTRADIOL\NORELGESTROMIN
  6. AMBRISENTAN [Suspect]
     Active Substance: AMBRISENTAN
     Indication: SYNCOPE
     Dosage: 5 MG, QD
     Route: 065
  7. POTASSIUM CHLORIDE. [Concomitant]
     Active Substance: POTASSIUM CHLORIDE
  8. TREPROSTINIL. [Concomitant]
     Active Substance: TREPROSTINIL
  9. ADCIRCA [Concomitant]
     Active Substance: TADALAFIL
  10. WARFARIN [Concomitant]
     Active Substance: WARFARIN
  11. LASIX [Concomitant]
     Active Substance: FUROSEMIDE
  12. DIGOXIN. [Concomitant]
     Active Substance: DIGOXIN
  13. BOSENTAN. [Concomitant]
     Active Substance: BOSENTAN
  14. ZYRTEC [Concomitant]
     Active Substance: CETIRIZINE HYDROCHLORIDE
  15. REMODULIN [Concomitant]
     Active Substance: TREPROSTINIL
     Dosage: 60.5 NG/KG/MIN, CONTINUOUS
     Route: 042
  16. COUMADIN [Concomitant]
     Active Substance: WARFARIN SODIUM

REACTIONS (7)
  - Pulmonary hypertension [Not Recovered/Not Resolved]
  - Headache [Recovered/Resolved]
  - Cardiac failure [Recovered/Resolved]
  - Vascular device infection [Recovered/Resolved]
  - Catheter site rash [Unknown]
  - Dyspnoea [Not Recovered/Not Resolved]
  - Application site irritation [Not Recovered/Not Resolved]

NARRATIVE: CASE EVENT DATE: 20190521
